FAERS Safety Report 10871118 (Version 1)
Quarter: 2015Q1

REPORT INFORMATION
  Report Type: Spontaneous
  Country: US (occurrence: None)
  Receive Date: 20150223
  Receipt Date: 20150223
  Transmission Date: 20150721
  Serious: Yes (Death, Hospitalization)
  Sender: FDA-Public Use
  Company Number: NSR_01968_2015

PATIENT

DRUGS (4)
  1. DILTIAZEM [Suspect]
     Active Substance: DILTIAZEM
     Indication: PRODUCT USED FOR UNKNOWN INDICATION
     Dosage: (DF [NOT THE PRESCRIBED AMOUNT])
     Route: 048
  2. NORTRIPTYLINE [Suspect]
     Active Substance: NORTRIPTYLINE
     Indication: PRODUCT USED FOR UNKNOWN INDICATION
     Dosage: (DF [NOT THE PRESCRIBED AMOUNT])
     Route: 048
  3. ATENOLOL. [Suspect]
     Active Substance: ATENOLOL
     Indication: PRODUCT USED FOR UNKNOWN INDICATION
     Dosage: (DF [NOT THE PRESCRIBED AMOUNT])
     Route: 048
  4. ETHANOL [Suspect]
     Active Substance: ALCOHOL
     Indication: PRODUCT USED FOR UNKNOWN INDICATION
     Dosage: (DF [NOT THE PRESCRIBED AMOUNT])
     Route: 048

REACTIONS (4)
  - Overdose [None]
  - Toxicity to various agents [None]
  - Mental status changes [None]
  - Cardiac arrest [None]
